FAERS Safety Report 7864235-8 (Version None)
Quarter: 2011Q4

REPORT INFORMATION
  Report Type: 
  Country: None (occurrence: None)
  Receive Date: 20111028
  Receipt Date: 20111024
  Transmission Date: 20120403
  Serious: Yes (Other)
  Sender: FDA-Public Use
  Company Number: US-PFIZER INC-2011260565

PATIENT
  Sex: Male

DRUGS (2)
  1. LYRICA [Suspect]
  2. GABAPENTIN [Suspect]

REACTIONS (3)
  - MYOCARDIAL INFARCTION [None]
  - HEPATITIS C [None]
  - PLATELET COUNT DECREASED [None]
